FAERS Safety Report 7116731-9 (Version None)
Quarter: 2010Q4

REPORT INFORMATION
  Report Type: 
  Country: None (occurrence: None)
  Receive Date: 20101122
  Receipt Date: 20101112
  Transmission Date: 20110411
  Serious: Yes (Hospitalization)
  Sender: FDA-Public Use
  Company Number: PHHO2010DE10603

PATIENT
  Sex: Male
  Weight: 90 kg

DRUGS (4)
  1. FTY 720 FTY+ [Suspect]
     Indication: MULTIPLE SCLEROSIS
     Dosage: DOUBLE BLIND
     Route: 048
     Dates: start: 20090115, end: 20090408
  2. FTY 720 FTY+ [Suspect]
     Dosage: 0.5MG
     Route: 048
     Dates: end: 20100712
  3. PREGABALIN [Concomitant]
     Dosage: UNK
     Dates: start: 20050825
  4. GINKYO [Concomitant]
     Dosage: UNK
     Dates: start: 20060825

REACTIONS (4)
  - ABSCESS SWEAT GLAND [None]
  - LEUKOPENIA [None]
  - LYMPHOPENIA [None]
  - SWEAT GLAND EXCISION [None]
